FAERS Safety Report 25244268 (Version 1)
Quarter: 2025Q2

REPORT INFORMATION
  Report Type: Spontaneous
  Country: FR (occurrence: FR)
  Receive Date: 20250428
  Receipt Date: 20250428
  Transmission Date: 20250717
  Serious: Yes (Other)
  Sender: ABBVIE
  Company Number: FR-ABBVIE-6253471

PATIENT
  Age: 53 Year
  Sex: Male

DRUGS (3)
  1. SILODOSIN [Suspect]
     Active Substance: SILODOSIN
     Indication: Pollakiuria
     Dosage: 8 MILLIGRAM, ONCE A DAY
     Route: 048
     Dates: start: 20241101, end: 20250216
  2. VESICARE [Suspect]
     Active Substance: SOLIFENACIN SUCCINATE
     Indication: Pollakiuria
     Dosage: DELAYED-RELEASE TABLET 10 MILLIGRAM, ONCE A DAY
     Route: 048
     Dates: start: 20241101, end: 20250216
  3. TOVIAZ [Suspect]
     Active Substance: FESOTERODINE FUMARATE
     Indication: Pollakiuria
     Dosage: 8 MILLIGRAM, ONCE A DAY
     Route: 048
     Dates: start: 20241101, end: 20250216

REACTIONS (7)
  - Paraesthesia [Recovering/Resolving]
  - Paresis [Recovering/Resolving]
  - Dysphagia [Recovering/Resolving]
  - Constipation [Recovering/Resolving]
  - Proctalgia [Recovering/Resolving]
  - Dysuria [Recovering/Resolving]
  - Back pain [Recovering/Resolving]

NARRATIVE: CASE EVENT DATE: 20250131
